FAERS Safety Report 11887568 (Version 1)
Quarter: 2016Q1

REPORT INFORMATION
  Report Type: Spontaneous
  Country: FR (occurrence: FR)
  Receive Date: 20160105
  Receipt Date: 20160105
  Transmission Date: 20160526
  Serious: Yes (Hospitalization, Other)
  Sender: FDA-Public Use
  Company Number: FR-BRISTOL-MYERS SQUIBB COMPANY-BMS-2015-091419

PATIENT
  Age: 81 Year
  Sex: Female

DRUGS (1)
  1. COUMADINE [Suspect]
     Active Substance: WARFARIN SODIUM
     Indication: PULMONARY EMBOLISM
     Dosage: 1 TAB, QD
     Route: 048
     Dates: start: 201402, end: 20140917

REACTIONS (2)
  - Cardiac failure [None]
  - Haematuria [Recovered/Resolved]

NARRATIVE: CASE EVENT DATE: 20150914
